FAERS Safety Report 5900484-3 (Version None)
Quarter: 2008Q3

REPORT INFORMATION
  Report Type: 
  Country: None (occurrence: None)
  Receive Date: 20080926
  Receipt Date: 20080923
  Transmission Date: 20090109
  Serious: Yes (Hospitalization, Other)
  Sender: FDA-Public Use
  Company Number: US-ROXANE LABORATORIES, INC.-2008-RO-00069RO

PATIENT
  Sex: Female

DRUGS (49)
  1. PREDNISONE [Suspect]
     Indication: HAEMOLYSIS
     Dates: start: 20080701
  2. PREDNISONE [Suspect]
     Dosage: 40MG
     Route: 048
     Dates: start: 20080725, end: 20080725
  3. PREDNISONE [Suspect]
     Dosage: 20MG
     Route: 048
     Dates: start: 20080726, end: 20080727
  4. SOLIRIS [Suspect]
     Indication: PAROXYSMAL NOCTURNAL HAEMOGLOBINURIA
     Dosage: 600MG
     Route: 042
     Dates: start: 20070821, end: 20070821
  5. SOLIRIS [Suspect]
     Dosage: 600MG
     Route: 042
     Dates: start: 20070828, end: 20070828
  6. SOLIRIS [Suspect]
     Dosage: 600MG
     Route: 042
     Dates: start: 20070904, end: 20070904
  7. SOLIRIS [Suspect]
     Dosage: 600MG
     Route: 042
     Dates: start: 20070911, end: 20070911
  8. SOLIRIS [Suspect]
     Dosage: 900MG
     Route: 042
     Dates: start: 20070918, end: 20070918
  9. SOLIRIS [Suspect]
     Dosage: 900MG
     Route: 042
     Dates: start: 20071002, end: 20071002
  10. SOLIRIS [Suspect]
     Dosage: 900MG
     Route: 042
     Dates: start: 20071016, end: 20071016
  11. SOLIRIS [Suspect]
     Dosage: 900MG
     Route: 042
     Dates: start: 20071030, end: 20071030
  12. SOLIRIS [Suspect]
     Dosage: 900MG
     Route: 042
     Dates: start: 20071113, end: 20071113
  13. SOLIRIS [Suspect]
     Dosage: 900MG
     Route: 042
     Dates: start: 20071127, end: 20071127
  14. SOLIRIS [Suspect]
     Dosage: 900MG
     Route: 042
     Dates: start: 20071211, end: 20071211
  15. SOLIRIS [Suspect]
     Dosage: 900MG
     Route: 042
     Dates: start: 20071227, end: 20071227
  16. SOLIRIS [Suspect]
     Dosage: 900MG
     Route: 042
     Dates: start: 20080114, end: 20080114
  17. SOLIRIS [Suspect]
     Dosage: 900MG
     Route: 042
     Dates: start: 20080125, end: 20080125
  18. SOLIRIS [Suspect]
     Dosage: 900MG
     Route: 042
     Dates: start: 20080212, end: 20080212
  19. SOLIRIS [Suspect]
     Dosage: 900MG
     Route: 042
     Dates: start: 20080229, end: 20080229
  20. SOLIRIS [Suspect]
     Dosage: 900MG
     Route: 042
     Dates: start: 20080314, end: 20080314
  21. SOLIRIS [Suspect]
     Dosage: 900MG
     Route: 042
     Dates: start: 20080328, end: 20080328
  22. SOLIRIS [Suspect]
     Dosage: 900MG
     Route: 042
     Dates: start: 20080411, end: 20080411
  23. SOLIRIS [Suspect]
     Dosage: 900MG
     Route: 042
     Dates: start: 20080425, end: 20080425
  24. SOLIRIS [Suspect]
     Dosage: 900MG
     Route: 042
     Dates: start: 20080512, end: 20080512
  25. SOLIRIS [Suspect]
     Dosage: 900MG
     Route: 042
     Dates: start: 20080527, end: 20080527
  26. SOLIRIS [Suspect]
     Dosage: 900MG
     Route: 042
     Dates: start: 20080610, end: 20080610
  27. SOLIRIS [Suspect]
     Dosage: 900MG
     Route: 042
     Dates: start: 20080624, end: 20080624
  28. SOLIRIS [Suspect]
     Dosage: 900MG
     Route: 042
     Dates: start: 20080708, end: 20080708
  29. SOLIRIS [Suspect]
     Route: 042
     Dates: start: 20080710, end: 20080710
  30. IRON [Concomitant]
  31. COUMADIN [Concomitant]
  32. COUMADIN [Concomitant]
     Dates: start: 20080725
  33. ATENOLOL [Concomitant]
  34. DETROL LA [Concomitant]
  35. LASIX [Concomitant]
  36. RANITIDINE [Concomitant]
  37. SERTRALINE [Concomitant]
  38. CYMBALTA [Concomitant]
  39. BUSPAR [Concomitant]
  40. ASPIRIN [Concomitant]
  41. FOLIC ACID [Concomitant]
  42. VITAMIN B6 [Concomitant]
  43. CALCIUM WITH VITAMIN D [Concomitant]
  44. VICODIN [Concomitant]
  45. VISTARIL [Concomitant]
  46. GLUCOSAMINE [Concomitant]
  47. SENNA [Concomitant]
  48. PROMETHAZINE [Concomitant]
  49. BENADRYL [Concomitant]

REACTIONS (4)
  - ARTHRITIS BACTERIAL [None]
  - ESCHERICHIA INFECTION [None]
  - SEPSIS [None]
  - SEPTIC SHOCK [None]
